FAERS Safety Report 21929804 (Version 1)
Quarter: 2023Q1

REPORT INFORMATION
  Report Type: Report from Study
  Country: FR (occurrence: FR)
  Receive Date: 20230131
  Receipt Date: 20230131
  Transmission Date: 20230418
  Serious: Yes (Death, Hospitalization, Other)
  Sender: FDA-Public Use
  Company Number: FR-JNJFOC-20221166912

PATIENT
  Age: 63 Year
  Sex: Female
  Weight: 41 kg

DRUGS (2)
  1. SELEXIPAG [Suspect]
     Active Substance: SELEXIPAG
     Indication: Pulmonary arterial hypertension
     Dosage: MORNING AND EVENING
     Route: 048
     Dates: start: 20221125, end: 20221126
  2. BOSENTAN [Suspect]
     Active Substance: BOSENTAN
     Indication: Pulmonary arterial hypertension
     Route: 065

REACTIONS (2)
  - Pulmonary arterial hypertension [Fatal]
  - Hepatic cirrhosis [Unknown]
